FAERS Safety Report 5465896-3 (Version None)
Quarter: 2007Q3

REPORT INFORMATION
  Report Type: 
  Country: None (occurrence: None)
  Receive Date: 20070924
  Receipt Date: 20070913
  Transmission Date: 20080115
  Serious: Yes (Hospitalization)
  Sender: FDA-Public Use
  Company Number: US-AVENTIS-200716540US

PATIENT
  Age: 9 Month
  Sex: Male
  Weight: 7 kg

DRUGS (5)
  1. LOVENOX [Suspect]
     Indication: PULMONARY ARTERY THROMBOSIS
     Route: 058
     Dates: end: 20070901
  2. CAPTOPRIL [Concomitant]
     Dosage: DOSE: UNK
  3. DIGOXIN [Concomitant]
     Dosage: DOSE: UNK
  4. FUROSEMIDE [Concomitant]
     Dosage: DOSE: UNK
  5. PHENOBARBITAL TAB [Concomitant]
     Dosage: DOSE: UNK

REACTIONS (2)
  - CEREBROVASCULAR ACCIDENT [None]
  - CONVULSION [None]
